FAERS Safety Report 7622910-4 (Version None)
Quarter: 2011Q3

REPORT INFORMATION
  Report Type: 
  Country: None (occurrence: None)
  Receive Date: 20110720
  Receipt Date: 20110706
  Transmission Date: 20111222
  Serious: Yes (Hospitalization, Other)
  Sender: FDA-Public Use
  Company Number: US-BAYER-2011-029748

PATIENT
  Age: 32 Year
  Sex: Female
  Weight: 65.306 kg

DRUGS (4)
  1. YASMIN [Suspect]
     Indication: CONTRACEPTION
     Dosage: UNK
     Dates: start: 20070501, end: 20070701
  2. PROVERA [Concomitant]
     Dosage: 10 MG, UNK
  3. VALTREX [Concomitant]
     Dosage: 500 MG, UNK
  4. DUET DHA STUARTNATAL COMBO PACK [Concomitant]
     Dosage: UNK UNK, QD
     Dates: start: 20060901, end: 20070801

REACTIONS (3)
  - PULMONARY EMBOLISM [None]
  - INJURY [None]
  - PAIN [None]
